FAERS Safety Report 7631420-X (Version None)
Quarter: 2011Q3

REPORT INFORMATION
  Report Type: 
  Country: None (occurrence: None)
  Receive Date: 20110725
  Receipt Date: 20110712
  Transmission Date: 20111222
  Serious: Yes (Life-Threatening)
  Sender: FDA-Public Use
  Company Number: FR-ELI_LILLY_AND_COMPANY-FR201107003042

PATIENT
  Sex: Male
  Weight: 66 kg

DRUGS (1)
  1. CYMBALTA [Suspect]
     Indication: DEPRESSION
     Dosage: 30 MG, QD
     Route: 048
     Dates: start: 20110115, end: 20110510

REACTIONS (3)
  - VENTRICULAR TACHYCARDIA [None]
  - HYPERTROPHIC CARDIOMYOPATHY [None]
  - ARRHYTHMOGENIC RIGHT VENTRICULAR DYSPLASIA [None]
